FAERS Safety Report 23176798 (Version 1)
Quarter: 2023Q4

REPORT INFORMATION
  Report Type: Spontaneous
  Country: US (occurrence: None)
  Receive Date: 20231110
  Receipt Date: 20231110
  Transmission Date: 20240110
  Serious: Yes (Hospitalization)
  Sender: FDA-Public Use
  Company Number: None

PATIENT
  Age: 10 Week
  Sex: Male
  Weight: 3.6 kg

DRUGS (2)
  1. BEYFORTUS [Suspect]
     Active Substance: NIRSEVIMAB-ALIP
     Indication: Prophylaxis
     Dosage: 50 MG ONE DOSE  INTRAMUSCULAR?
     Route: 030
     Dates: start: 20231103, end: 20231103
  2. BEYFORTUS [Suspect]
     Active Substance: NIRSEVIMAB-ALIP
     Indication: Infant

REACTIONS (3)
  - Respiratory distress [None]
  - Respiratory syncytial virus test positive [None]
  - Human rhinovirus test positive [None]

NARRATIVE: CASE EVENT DATE: 20231106
